FAERS Safety Report 8389440-6 (Version None)
Quarter: 2012Q2

REPORT INFORMATION
  Report Type: 
  Country: None (occurrence: None)
  Receive Date: 20120528
  Receipt Date: 20120515
  Transmission Date: 20120825
  Serious: No
  Sender: FDA-Public Use
  Company Number: US-BAYER-2012-052069

PATIENT

DRUGS (1)
  1. NAPROXEN SODIUM [Suspect]
     Indication: BACK PAIN
     Route: 048

REACTIONS (2)
  - ASTHENOPIA [None]
  - BACK PAIN [None]
